FAERS Safety Report 8451240-6 (Version None)
Quarter: 2012Q2

REPORT INFORMATION
  Report Type: 
  Country: None (occurrence: None)
  Receive Date: 20120620
  Receipt Date: 20120301
  Transmission Date: 20120825
  Serious: No
  Sender: FDA-Public Use
  Company Number: US-VERTEX PHARMACEUTICALS INC.-AE-2012-001356

PATIENT
  Sex: Male
  Weight: 102.15 kg

DRUGS (6)
  1. SULFASALAZINE [Concomitant]
     Indication: RHEUMATOID ARTHRITIS
     Route: 048
  2. RIBAVIRIN [Concomitant]
     Indication: HEPATITIS C
     Route: 048
     Dates: start: 20120120
  3. PEGASYS [Concomitant]
     Indication: HEPATITIS C
     Route: 058
     Dates: start: 20120120
  4. ZANTAC [Concomitant]
     Indication: DYSPEPSIA
  5. INCIVEK [Suspect]
     Indication: HEPATITIS C
     Route: 048
     Dates: start: 20120120
  6. ZANTAC [Concomitant]
     Indication: GASTROOESOPHAGEAL REFLUX DISEASE
     Route: 048

REACTIONS (11)
  - DYSPEPSIA [None]
  - NASAL DISCOMFORT [None]
  - PAIN [None]
  - DIARRHOEA [None]
  - RASH [None]
  - FEELING ABNORMAL [None]
  - NAUSEA [None]
  - PARAESTHESIA [None]
  - THROAT IRRITATION [None]
  - GINGIVAL BLEEDING [None]
  - CONSTIPATION [None]
